FAERS Safety Report 5104074-4 (Version None)
Quarter: 2006Q3

REPORT INFORMATION
  Report Type: 
  Country: None (occurrence: None)
  Receive Date: 20060911
  Receipt Date: 20060830
  Transmission Date: 20061208
  Serious: Yes (Death)
  Sender: FDA-Public Use
  Company Number: 2006050341

PATIENT
  Age: 78 Year
  Sex: Male
  Weight: 54 kg

DRUGS (7)
  1. VFEND [Suspect]
     Indication: ASPERGILLOSIS
     Dosage: SEE IMAGE
     Route: 042
     Dates: start: 20060118, end: 20060118
  2. VFEND [Suspect]
     Indication: ASPERGILLOSIS
     Dosage: SEE IMAGE
     Route: 042
     Dates: start: 20060119, end: 20060201
  3. MEROPEN               (MEROPENEM) [Concomitant]
  4. FIRSTCIN               (CEFOZOPRAN HYDROCHLORIDE) [Concomitant]
  5. ERYTHROCIN [Concomitant]
  6. BIAPENEM [Concomitant]
  7. VANCOMYCIN [Concomitant]

REACTIONS (9)
  - BRONCHOPNEUMONIA [None]
  - DIFFUSE ALVEOLAR DAMAGE [None]
  - DRUG LEVEL INCREASED [None]
  - INTERSTITIAL LUNG DISEASE [None]
  - METABOLIC DISORDER [None]
  - PULMONARY OEDEMA [None]
  - RENAL FAILURE [None]
  - RESPIRATORY FAILURE [None]
  - SCAR [None]
